FAERS Safety Report 9372245 (Version 2)
Quarter: 2014Q3

REPORT INFORMATION
  Report Type: Spontaneous
  Country: US (occurrence: None)
  Receive Date: 20130625
  Receipt Date: 20140731
  Transmission Date: 20150326
  Serious: Yes (Hospitalization)
  Sender: FDA-Public Use
  Company Number: US-000726

PATIENT
  Age: 68 Year
  Sex: Female

DRUGS (20)
  1. VITAMIN B12 [Concomitant]
     Active Substance: CYANOCOBALAMIN
  2. BETA CAROTENE [Concomitant]
  3. MAGNESIUM [Concomitant]
     Active Substance: MAGNESIUM
  4. CALCIUM CITRATE WITH VITAMIN D [Concomitant]
     Active Substance: CALCIUM CITRATE\VITAMIN D
  5. PROBITOTIC /06395501/ [Concomitant]
  6. NORMAL SALINE [Concomitant]
     Active Substance: SODIUM CHLORIDE
  7. IMODIUM [Concomitant]
     Active Substance: LOPERAMIDE HYDROCHLORIDE
  8. ASPIRIN. [Concomitant]
     Active Substance: ASPIRIN
  9. FOLIC ACID. [Concomitant]
     Active Substance: FOLIC ACID
  10. IRON [Concomitant]
     Active Substance: IRON
  11. ASCORBIC ACID. [Concomitant]
     Active Substance: ASCORBIC ACID
  12. GATTEX [Suspect]
     Active Substance: TEDUGLUTIDE\WATER
     Indication: SHORT-BOWEL SYNDROME
     Route: 058
     Dates: start: 2013
  13. PANTOPRAZOLE [Concomitant]
     Active Substance: PANTOPRAZOLE SODIUM
  14. BIOTIN [Concomitant]
     Active Substance: BIOTIN
  15. BENEFIBER /00677201/ [Concomitant]
  16. VITAMIN D3 [Concomitant]
     Active Substance: CHOLECALCIFEROL
  17. APPLE PECTIN [Concomitant]
  18. ADVIL [Concomitant]
     Active Substance: IBUPROFEN
  19. MULTIVITAMIN [Concomitant]
     Active Substance: VITAMINS
  20. ZINC [Concomitant]
     Active Substance: ZINC\ZINC CHLORIDE

REACTIONS (6)
  - Chills [None]
  - Pyrexia [None]
  - Device related infection [None]
  - Stoma complication [None]
  - Hot flush [None]
  - Nausea [None]

NARRATIVE: CASE EVENT DATE: 20130604
